FAERS Safety Report 13801259 (Version 7)
Quarter: 2017Q3

REPORT INFORMATION
  Report Type: Spontaneous
  Country: US (occurrence: US)
  Receive Date: 20170727
  Receipt Date: 20170919
  Transmission Date: 20171127
  Serious: Yes (Other)
  Sender: FDA-Public Use
  Company Number: US-PFIZER INC-2016294995

PATIENT
  Age: 64 Year
  Sex: Female
  Weight: 102.4 kg

DRUGS (23)
  1. CEFTIN [Concomitant]
     Active Substance: CEFUROXIME AXETIL
     Dosage: 500 MG, 2X/DAY
     Route: 048
  2. ESTRACE [Concomitant]
     Active Substance: ESTRADIOL
     Dosage: 1 MG, DAILY
     Route: 048
  3. LASIX [Concomitant]
     Active Substance: FUROSEMIDE
     Dosage: 40 MG, DAILY
     Route: 048
  4. CORGARD [Concomitant]
     Active Substance: NADOLOL
     Dosage: 40 MG, 2X/DAY
     Route: 048
  5. BENZONATATE. [Concomitant]
     Active Substance: BENZONATATE
     Indication: COUGH
     Dosage: 200 MG, AS NEEDED, (1 CAP THREE TIMES A DAY)
     Route: 048
  6. ZANTAC [Concomitant]
     Active Substance: RANITIDINE HYDROCHLORIDE
     Dosage: 150 MG, DAILY
     Route: 048
  7. AMBIEN [Concomitant]
     Active Substance: ZOLPIDEM TARTRATE
     Dosage: 10 MG, AS NEEDED, (AT BEDTIME IF NEEDED)
     Route: 048
  8. XYLOCAINE VISCOUS [Concomitant]
     Active Substance: LIDOCAINE HYDROCHLORIDE
     Indication: ORAL PAIN
     Dosage: HOLD IN MOUTH AS LONG AS POSSIBLE, 4X/DAY
     Route: 048
  9. PERCOCET [Concomitant]
     Active Substance: ACETAMINOPHEN\OXYCODONE HYDROCHLORIDE
     Indication: PAIN
     Dosage: AS NEEDED,[OXYCODONE; 5MG, ACETAMINOPHEN; 325MG] (1-2 TABS  EVERY FOUR TO SIX HOURS)
     Route: 048
  10. LYRICA [Suspect]
     Active Substance: PREGABALIN
     Indication: NEURALGIA
     Dosage: 75 MG, 4X/DAY
     Route: 048
     Dates: start: 20160601
  11. LYRICA [Suspect]
     Active Substance: PREGABALIN
     Dosage: 75 MG, 4X/DAY
     Route: 048
  12. OXYCONTIN [Concomitant]
     Active Substance: OXYCODONE HYDROCHLORIDE
     Dosage: 40 MG, 3X/DAY
     Route: 048
  13. CELEBREX [Concomitant]
     Active Substance: CELECOXIB
     Dosage: 200 MG, 2X/DAY
     Route: 048
  14. LYRICA [Suspect]
     Active Substance: PREGABALIN
     Dosage: 75 MG, 4X/DAY
     Route: 048
     Dates: start: 20161202
  15. K-TAB [Concomitant]
     Active Substance: POTASSIUM CHLORIDE
     Dosage: 10 MEQ, DAILY
     Route: 048
  16. MAALOX ANTACID [Concomitant]
     Active Substance: ALUMINUM HYDROXIDE\DIMETHICONE\MAGNESIUM HYDROXIDE
     Indication: ORAL PAIN
     Dosage: HOLD IN MOUTH AS LONG AS POSSIBLE, 4X/DAY
     Route: 048
  17. SOMA [Concomitant]
     Active Substance: CARISOPRODOL
     Dosage: 350 MG, 4X/DAY
     Route: 048
  18. HYDRODIURIL [Concomitant]
     Active Substance: HYDROCHLOROTHIAZIDE
     Dosage: 25 MG, DAILY
     Route: 048
  19. SYNTHROID [Concomitant]
     Active Substance: LEVOTHYROXINE SODIUM
     Dosage: 125 UG, DAILY
     Route: 048
  20. COUMADIN [Concomitant]
     Active Substance: WARFARIN SODIUM
     Dosage: 7.5 MG, DAILY, (1.5 TABS EVERY DAY)
     Route: 048
  21. BENADRYL ELIXIR [Concomitant]
     Indication: ORAL PAIN
     Dosage: HOLD IN MOUTH AS LONG AS POSSIBLE, 4X/DAY
     Route: 048
  22. LYRICA [Suspect]
     Active Substance: PREGABALIN
     Dosage: 75 MG, 4X/DAY
     Route: 048
     Dates: start: 20170623
  23. ZOLOFT [Concomitant]
     Active Substance: SERTRALINE HYDROCHLORIDE
     Dosage: 100 MG, DAILY
     Route: 048

REACTIONS (4)
  - Neoplasm malignant [Unknown]
  - Malaise [Unknown]
  - Pain [Unknown]
  - Product use issue [Unknown]

NARRATIVE: CASE EVENT DATE: 20160601
